FAERS Safety Report 16726099 (Version 3)
Quarter: 2020Q2

REPORT INFORMATION
  Report Type: Spontaneous
  Country: IT (occurrence: IT)
  Receive Date: 20190821
  Receipt Date: 20200518
  Transmission Date: 20200713
  Serious: Yes (Hospitalization)
  Sender: FDA-Public Use
  Company Number: IT-TEVA-2019-IT-1093947

PATIENT
  Age: 27 Year
  Sex: Male

DRUGS (2)
  1. DEPAKIN CHRONO 500 MG COMPRESSE A RILASCIO PROLUNGATO [Suspect]
     Active Substance: VALPROIC ACID
     Indication: MENTAL DISORDER
     Dosage: 3000 MILLIGRAM,
     Route: 048
     Dates: start: 20190722, end: 20190722
  2. QUETIAPINE. [Suspect]
     Active Substance: QUETIAPINE
     Indication: MENTAL DISORDER
     Dosage: 1800 MILLIGRAM
     Route: 048
     Dates: start: 20190722, end: 20190722

REACTIONS (3)
  - Tachycardia [Recovering/Resolving]
  - Sopor [Recovering/Resolving]
  - Medication error [Recovering/Resolving]

NARRATIVE: CASE EVENT DATE: 20190722
